FAERS Safety Report 10236358 (Version 1)
Quarter: 2014Q1

REPORT INFORMATION
  Report Type: Spontaneous
  Country: US (occurrence: None)
  Receive Date: 20140306
  Receipt Date: 20140306
  Transmission Date: 20141002
  Serious: Yes (Other)
  Sender: FDA-Public Use
  Company Number: 163-21880-13020036

PATIENT
  Age: 79 Year
  Sex: Male

DRUGS (9)
  1. REVLIMID (LENALIDOMIDE) (10 MILLIGRAM, CAPSULES) [Suspect]
     Indication: PLASMA CELL MYELOMA
     Dosage: UNK
     Route: 048
     Dates: start: 20121005
  2. ASPIRIN (ACETYLSALICYLIC ACID) (UNKNOWN) (ACETYLSALICYLIC ACID) [Concomitant]
  3. BENADRYL ALLERGY (BENADRYL ALLERGY) (UNKNOWN) [Concomitant]
  4. CITALOPRAM HYDROBROMIDE) ( CITALOPRAM HYDROBROMIDE) (UNKNOWN) [Concomitant]
  5. DAPSONE (DAPSONE) (UNKNOWN) [Concomitant]
  6. DONEPEZIL HCL (DONEPEZIL HYDROCHLORIDE) (UNKNOWN) [Concomitant]
  7. FLUTICASONE PROPIONATE (FLUTICASONE PROPIONATE) (UNKNOWN) [Concomitant]
  8. FOLIC ACID (FOLIC ACID) (UNKNOWN) [Concomitant]
  9. LEVOTHYROXINE SODIUM (LEVOTHYROXINE SODIUM) (UNKNOWN) [Concomitant]

REACTIONS (1)
  - Protein total increased [None]
